FAERS Safety Report 22108898 (Version 1)
Quarter: 2023Q1

REPORT INFORMATION
  Report Type: Spontaneous
  Country: IN (occurrence: IN)
  Receive Date: 20230317
  Receipt Date: 20230317
  Transmission Date: 20230418
  Serious: Yes (Life-Threatening, Hospitalization, Other)
  Sender: FDA-Public Use
  Company Number: None

PATIENT
  Age: 23 Year
  Sex: Female
  Weight: 50 kg

DRUGS (2)
  1. METFORMIN HYDROCHLORIDE [Suspect]
     Active Substance: METFORMIN HYDROCHLORIDE
     Indication: Product used for unknown indication
     Route: 065
  2. GLIMEPIRIDE [Suspect]
     Active Substance: GLIMEPIRIDE
     Indication: Product used for unknown indication
     Route: 065

REACTIONS (4)
  - Generalised tonic-clonic seizure [Recovered/Resolved]
  - Hypoglycaemia [Recovered/Resolved]
  - Hypoxia [Recovered/Resolved]
  - Overdose [Unknown]
